FAERS Safety Report 21449410 (Version 1)
Quarter: 2022Q4

REPORT INFORMATION
  Report Type: Report from Study
  Country: IN (occurrence: IN)
  Receive Date: 20221013
  Receipt Date: 20221013
  Transmission Date: 20230113
  Serious: Yes (Death)
  Sender: FDA-Public Use
  Company Number: IN-NOVARTISPH-NVSC2021IN299139

PATIENT
  Age: 65 Year
  Sex: Male

DRUGS (1)
  1. SACUBITRIL\VALSARTAN [Suspect]
     Active Substance: SACUBITRIL\VALSARTAN
     Indication: Cardiac failure chronic
     Dosage: 025 MG, BID (1/4 PART TAKING IN MORNING AND 1/4 PART IS TAKING IN NIGHT)
     Route: 065
     Dates: start: 20211215

REACTIONS (4)
  - Diarrhoea [Fatal]
  - Vomiting [Fatal]
  - Hiccups [Fatal]
  - Wrong technique in product usage process [Unknown]

NARRATIVE: CASE EVENT DATE: 20211215
